FAERS Safety Report 14951607 (Version 1)
Quarter: 2018Q2

REPORT INFORMATION
  Report Type: Spontaneous
  Country: US (occurrence: US)
  Receive Date: 20180509
  Receipt Date: 20180509
  Transmission Date: 20180711
  Serious: No
  Sender: FDA-Public Use
  Company Number: None

PATIENT
  Age: 76 Year
  Sex: Female

DRUGS (2)
  1. CAPECITABINE 500MG WEST-WARD [Suspect]
     Active Substance: CAPECITABINE
     Indication: BREAST CANCER FEMALE
     Route: 048
     Dates: start: 20180122
  2. CAPECITABINE 500MG WEST-WARD [Suspect]
     Active Substance: CAPECITABINE
     Indication: BREAST CANCER FEMALE

REACTIONS (3)
  - Skin exfoliation [None]
  - Nail discolouration [None]
  - Hyperaesthesia [None]

NARRATIVE: CASE EVENT DATE: 20180503
